FAERS Safety Report 11299893 (Version 1)
Quarter: 2015Q3

REPORT INFORMATION
  Report Type: Spontaneous
  Country: PR (occurrence: US)
  Receive Date: 20150722
  Receipt Date: 20150722
  Transmission Date: 20151125
  Serious: No
  Sender: FDA-Public Use
  Company Number: PR-ELI_LILLY_AND_COMPANY-US201304004031

PATIENT

DRUGS (1)
  1. EVISTA [Suspect]
     Active Substance: RALOXIFENE HYDROCHLORIDE
     Indication: OSTEOPOROSIS
     Dosage: 60 MG, QD
     Route: 065

REACTIONS (6)
  - Hyperhidrosis [Unknown]
  - Tachycardia [Unknown]
  - Fatigue [Unknown]
  - Insomnia [Unknown]
  - Feeling abnormal [Unknown]
  - Inflammation [Unknown]
